FAERS Safety Report 16183467 (Version 2)
Quarter: 2019Q2

REPORT INFORMATION
  Report Type: Spontaneous
  Country: BR (occurrence: BR)
  Receive Date: 20190411
  Receipt Date: 20190429
  Transmission Date: 20190711
  Serious: Yes (Other)
  Sender: FDA-Public Use
  Company Number: BR-ABBVIE-19P-020-2740241-00

PATIENT
  Age: 17 Year
  Sex: Female
  Weight: 66 kg

DRUGS (15)
  1. RISPERIDONE. [Suspect]
     Active Substance: RISPERIDONE
     Indication: PSYCHOTIC DISORDER
     Route: 065
     Dates: start: 201712, end: 201802
  2. RISPERIDONE. [Suspect]
     Active Substance: RISPERIDONE
     Indication: BIPOLAR DISORDER
  3. CARBOLITIUM [Suspect]
     Active Substance: LITHIUM CARBONATE
     Indication: EUPHORIC MOOD
  4. OLANZAPINE. [Concomitant]
     Active Substance: OLANZAPINE
     Indication: BIPOLAR DISORDER
     Route: 048
  5. OLANZAPINE. [Concomitant]
     Active Substance: OLANZAPINE
     Indication: PSYCHOTIC DISORDER
  6. ARIPIPRAZOLE. [Concomitant]
     Active Substance: ARIPIPRAZOLE
     Indication: PSYCHOTIC DISORDER
  7. DEPAKOTE ER [Suspect]
     Active Substance: DIVALPROEX SODIUM
     Indication: PRODUCT USED FOR UNKNOWN INDICATION
     Route: 048
     Dates: start: 201709, end: 201712
  8. FLUVOXAMINE MALEATE. [Suspect]
     Active Substance: FLUVOXAMINE MALEATE
     Indication: DEPRESSION
     Route: 065
     Dates: start: 201712, end: 201802
  9. OLANZAPINE. [Concomitant]
     Active Substance: OLANZAPINE
     Indication: SCHIZOPHRENIA
     Route: 048
     Dates: start: 201712
  10. ARIPIPRAZOLE. [Concomitant]
     Active Substance: ARIPIPRAZOLE
     Indication: BIPOLAR DISORDER
     Dosage: DAILY DOSE: 10 MG+ 2.5 MG;
     Route: 048
  11. CARBOLITIUM [Suspect]
     Active Substance: LITHIUM CARBONATE
     Indication: SUICIDAL IDEATION
     Route: 065
     Dates: start: 201712, end: 201802
  12. QUETIAPINE. [Concomitant]
     Active Substance: QUETIAPINE
     Indication: INSOMNIA
     Route: 048
     Dates: start: 201712
  13. ARIPIPRAZOLE. [Concomitant]
     Active Substance: ARIPIPRAZOLE
     Indication: SCHIZOPHRENIA
     Dosage: DAILY DOSE: 10 MG+ 2.5 MG
     Route: 048
     Dates: start: 201712
  14. ZOLPIDEM [Concomitant]
     Active Substance: ZOLPIDEM\ZOLPIDEM TARTRATE
     Indication: PSYCHOTIC DISORDER
     Dates: start: 201712, end: 201802
  15. ZOLPIDEM [Concomitant]
     Active Substance: ZOLPIDEM\ZOLPIDEM TARTRATE
     Indication: BIPOLAR DISORDER

REACTIONS (20)
  - Blood disorder [Unknown]
  - Therapy cessation [Unknown]
  - Drug ineffective [Unknown]
  - Malaise [Unknown]
  - Weight increased [Unknown]
  - Swelling [Unknown]
  - Metabolic disorder [Unknown]
  - Gingival bleeding [Recovered/Resolved]
  - Epistaxis [Recovered/Resolved]
  - Galactorrhoea [Unknown]
  - Lymphoedema [Unknown]
  - Product complaint [Unknown]
  - Mouth haemorrhage [Recovered/Resolved]
  - Breast disorder [Unknown]
  - Off label use [Unknown]
  - Suicidal ideation [Recovered/Resolved]
  - Homicidal ideation [Recovered/Resolved]
  - Condition aggravated [Unknown]
  - Product use issue [Unknown]
  - Agitation [Unknown]

NARRATIVE: CASE EVENT DATE: 201711
